FAERS Safety Report 7506056-1 (Version None)
Quarter: 2011Q2

REPORT INFORMATION
  Report Type: 
  Country: None (occurrence: None)
  Receive Date: 20110526
  Receipt Date: 20110516
  Transmission Date: 20111010
  Serious: Yes (Hospitalization)
  Sender: FDA-Public Use
  Company Number: CN-ROCHE-777660

PATIENT
  Age: 82 Year
  Sex: Male
  Weight: 60 kg

DRUGS (3)
  1. CELLCEPT [Suspect]
     Route: 048
  2. CELLCEPT [Suspect]
     Indication: NEPHROTIC SYNDROME
     Route: 048
     Dates: start: 20100301
  3. CELLCEPT [Suspect]
     Route: 048

REACTIONS (6)
  - HERNIA [None]
  - NASOPHARYNGITIS [None]
  - BENIGN PROSTATIC HYPERPLASIA [None]
  - PLEURAL EFFUSION [None]
  - NEPHROTIC SYNDROME [None]
  - LUNG INFECTION [None]
